FAERS Safety Report 4444689-X (Version None)
Quarter: 2004Q3

REPORT INFORMATION
  Report Type: 
  Country: None (occurrence: None)
  Receive Date: 20040902
  Receipt Date: 20040823
  Transmission Date: 20050211
  Serious: No
  Sender: FDA-Public Use
  Company Number: USA040874415

PATIENT
  Age: 16 Year
  Sex: Male
  Weight: 77 kg

DRUGS (2)
  1. STRATTERA [Suspect]
     Indication: ATTENTION DEFICIT/HYPERACTIVITY DISORDER
     Dosage: 80 MG /1 DAY
     Dates: start: 20040408, end: 20040729
  2. CONCERTA [Concomitant]

REACTIONS (3)
  - ACCOMMODATION DISORDER [None]
  - VISION BLURRED [None]
  - VISUAL DISTURBANCE [None]
